FAERS Safety Report 12124609 (Version 1)
Quarter: 2016Q1

REPORT INFORMATION
  Report Type: Spontaneous
  Country: US (occurrence: US)
  Receive Date: 20160229
  Receipt Date: 20160229
  Transmission Date: 20160526
  Serious: Yes (Hospitalization)
  Sender: FDA-Public Use
  Company Number: US-JNJFOC-20160224649

PATIENT
  Age: 68 Year
  Sex: Female

DRUGS (1)
  1. RIVAROXABAN [Suspect]
     Active Substance: RIVAROXABAN
     Indication: DEEP VEIN THROMBOSIS
     Route: 048

REACTIONS (5)
  - Abdominal compartment syndrome [Unknown]
  - Intra-abdominal haematoma [Unknown]
  - Shock haemorrhagic [Recovered/Resolved]
  - Vascular pseudoaneurysm [Unknown]
  - Splenic rupture [Recovered/Resolved]
